FAERS Safety Report 23649821 (Version 2)
Quarter: 2024Q2

REPORT INFORMATION
  Report Type: Spontaneous
  Country: GR (occurrence: GR)
  Receive Date: 20240319
  Receipt Date: 20240402
  Transmission Date: 20240716
  Serious: Yes (Other)
  Sender: FDA-Public Use
  Company Number: GR-TAKEDA-2024TUS023236

PATIENT
  Age: 49 Year
  Sex: Female

DRUGS (1)
  1. ADCETRIS [Suspect]
     Active Substance: BRENTUXIMAB VEDOTIN
     Indication: Anaplastic large cell lymphoma T- and null-cell types
     Dosage: 1.8 MILLIGRAM/KILOGRAM, Q3WEEKS
     Route: 042

REACTIONS (1)
  - Anaplastic large cell lymphoma T- and null-cell types [Unknown]
